FAERS Safety Report 5009433-6 (Version None)
Quarter: 2006Q2

REPORT INFORMATION
  Report Type: 
  Country: None (occurrence: None)
  Receive Date: 20060524
  Receipt Date: 20060519
  Transmission Date: 20061013
  Serious: Yes (Other)
  Sender: FDA-Public Use
  Company Number: US-JNJFOC-20060504706

PATIENT
  Age: 80 Year
  Sex: Female

DRUGS (2)
  1. IMODIUM A-D [Suspect]
  2. IMODIUM A-D [Suspect]

REACTIONS (3)
  - JOINT INJURY [None]
  - LOSS OF CONSCIOUSNESS [None]
  - REACTION TO COLOURING [None]
